FAERS Safety Report 8798221 (Version 2)
Quarter: 2015Q2

REPORT INFORMATION
  Report Type: Report from Study
  Country: US (occurrence: US)
  Receive Date: 20120920
  Receipt Date: 20150615
  Transmission Date: 20150821
  Serious: Yes (Death)
  Sender: FDA-Public Use
  Company Number: US-ROCHE-1122747

PATIENT
  Sex: Male

DRUGS (42)
  1. AVASTIN [Suspect]
     Active Substance: BEVACIZUMAB
     Indication: METASTASES TO LIVER
     Route: 042
     Dates: start: 20060919
  2. GEMZAR [Concomitant]
     Active Substance: GEMCITABINE HYDROCHLORIDE
     Route: 042
  3. IRINOTECAN [Concomitant]
     Active Substance: IRINOTECAN
     Route: 042
  4. ZOMETA [Concomitant]
     Active Substance: ZOLEDRONIC ACID
     Route: 042
  5. GLIPIZIDE. [Concomitant]
     Active Substance: GLIPIZIDE
     Route: 042
  6. PREVACID [Concomitant]
     Active Substance: LANSOPRAZOLE
     Route: 042
  7. PAXIL (UNITED STATES) [Concomitant]
     Route: 042
  8. REGLAN [Concomitant]
     Active Substance: METOCLOPRAMIDE HYDROCHLORIDE
  9. LIDOCAINE. [Concomitant]
     Active Substance: LIDOCAINE
  10. TRICOR [Concomitant]
     Active Substance: FENOFIBRATE
     Route: 065
  11. BYETTA [Concomitant]
     Active Substance: EXENATIDE
     Route: 058
  12. ALEVE [Concomitant]
     Active Substance: NAPROXEN SODIUM
     Route: 065
  13. GEMZAR [Concomitant]
     Active Substance: GEMCITABINE HYDROCHLORIDE
     Route: 042
  14. TAXOTERE [Concomitant]
     Active Substance: DOCETAXEL
     Route: 042
  15. DILAUDID [Concomitant]
     Active Substance: HYDROMORPHONE HYDROCHLORIDE
     Route: 042
  16. COMPAZINE [Concomitant]
     Active Substance: PROCHLORPERAZINE MALEATE
     Route: 042
  17. NEXIUM [Concomitant]
     Active Substance: ESOMEPRAZOLE MAGNESIUM
     Route: 042
  18. KYTRIL [Concomitant]
     Active Substance: GRANISETRON HYDROCHLORIDE
     Route: 042
  19. ACETAMINOPHEN. [Concomitant]
     Active Substance: ACETAMINOPHEN
     Route: 042
  20. VICODIN [Concomitant]
     Active Substance: ACETAMINOPHEN\HYDROCODONE BITARTRATE
     Dosage: 5/500 UNITS
     Route: 065
  21. AVASTIN [Suspect]
     Active Substance: BEVACIZUMAB
     Route: 042
     Dates: start: 20060720
  22. AVASTIN [Suspect]
     Active Substance: BEVACIZUMAB
     Route: 042
  23. IRINOTECAN [Concomitant]
     Active Substance: IRINOTECAN
     Route: 042
  24. IRINOTECAN [Concomitant]
     Active Substance: IRINOTECAN
     Route: 042
  25. DURAGESIC [Concomitant]
     Active Substance: FENTANYL
     Route: 042
  26. DURAGESIC [Concomitant]
     Active Substance: FENTANYL
     Route: 042
  27. LOTRIMIN (UNITED STATES) [Concomitant]
     Route: 061
  28. ALPRAZOLAM. [Concomitant]
     Active Substance: ALPRAZOLAM
     Route: 065
  29. METFORMIN [Concomitant]
     Active Substance: METFORMIN HYDROCHLORIDE
     Route: 065
  30. ACTOS [Concomitant]
     Active Substance: PIOGLITAZONE HYDROCHLORIDE
     Route: 065
  31. DECADRON [Concomitant]
     Active Substance: DEXAMETHASONE
     Route: 042
  32. TAXOTERE [Concomitant]
     Active Substance: DOCETAXEL
     Route: 042
  33. TAXOTERE [Concomitant]
     Active Substance: DOCETAXEL
     Route: 042
  34. AVASTIN [Suspect]
     Active Substance: BEVACIZUMAB
     Indication: PANCREATIC CARCINOMA
     Route: 042
     Dates: start: 20060302
  35. AVASTIN [Suspect]
     Active Substance: BEVACIZUMAB
     Route: 042
     Dates: start: 20060622
  36. QUINAPRIL [Concomitant]
     Active Substance: QUINAPRIL\QUINAPRIL HYDROCHLORIDE
     Route: 042
  37. ATROPINE [Concomitant]
     Active Substance: ATROPINE
     Route: 042
  38. DIGITEK [Concomitant]
     Active Substance: DIGOXIN
     Route: 042
  39. TYLENOL [Concomitant]
     Active Substance: ACETAMINOPHEN
     Route: 042
  40. ARANESP [Concomitant]
     Active Substance: DARBEPOETIN ALFA
     Route: 058
  41. LASIX [Concomitant]
     Active Substance: FUROSEMIDE
     Route: 042
  42. TOPROL XL [Concomitant]
     Active Substance: METOPROLOL SUCCINATE
     Route: 042

REACTIONS (2)
  - Death [Fatal]
  - Off label use [Unknown]
